FAERS Safety Report 4763163-4 (Version None)
Quarter: 2005Q3

REPORT INFORMATION
  Report Type: 
  Country: None (occurrence: None)
  Receive Date: 20050902
  Receipt Date: 20050822
  Transmission Date: 20060218
  Serious: Yes (Other)
  Sender: FDA-Public Use
  Company Number: 12153

PATIENT
  Age: 69 Year
  Sex: Female

DRUGS (4)
  1. METHOTREXATE [Suspect]
  2. VINBLASTINE [Suspect]
  3. DOXORUBICIN [Suspect]
  4. CISPLATIN [Suspect]

REACTIONS (7)
  - BACK PAIN [None]
  - CATHETER RELATED INFECTION [None]
  - HYPOAESTHESIA [None]
  - INFECTIVE SPONDYLITIS [None]
  - SENSORY DISTURBANCE [None]
  - STAPHYLOCOCCAL INFECTION [None]
  - URINARY RETENTION [None]
